FAERS Safety Report 6559261-5 (Version None)
Quarter: 2010Q1

REPORT INFORMATION
  Report Type: 
  Country: None (occurrence: None)
  Receive Date: 20100129
  Receipt Date: 20090909
  Transmission Date: 20100710
  Serious: No
  Sender: FDA-Public Use
  Company Number: US-ABBOTT-09P-163-0593036-00

PATIENT
  Sex: Male
  Weight: 91.708 kg

DRUGS (3)
  1. HUMIRA [Suspect]
     Indication: ANKYLOSING SPONDYLITIS
     Route: 058
     Dates: start: 20090401
  2. ALEVE (CAPLET) [Concomitant]
     Indication: PAIN
     Route: 048
  3. ALEVE (CAPLET) [Concomitant]

REACTIONS (2)
  - DRUG DOSE OMISSION [None]
  - LIGAMENT RUPTURE [None]
